FAERS Safety Report 4592107-3 (Version None)
Quarter: 2005Q1

REPORT INFORMATION
  Report Type: 
  Country: None (occurrence: None)
  Receive Date: 20050125
  Receipt Date: 20040930
  Transmission Date: 20050727
  Serious: No
  Sender: FDA-Public Use
  Company Number: USA040875532

PATIENT
  Age: 78 Year
  Sex: Female
  Weight: 61 kg

DRUGS (5)
  1. FORTEO [Suspect]
     Indication: OSTEOPOROSIS
     Dosage: 20 UG DAY
     Dates: start: 20040806
  2. ASPIRIN [Concomitant]
  3. NAPROSYN (NAPROXEN MEPHA) [Concomitant]
  4. FOSAMAX [Concomitant]
  5. CALCIUM GLUCONATE [Concomitant]

REACTIONS (3)
  - HEADACHE [None]
  - INJECTION SITE HAEMORRHAGE [None]
  - MUSCLE SPASMS [None]
